FAERS Safety Report 23977951 (Version 1)
Quarter: 2024Q2

REPORT INFORMATION
  Report Type: Spontaneous
  Country: CN (occurrence: None)
  Receive Date: 20240614
  Receipt Date: 20240614
  Transmission Date: 20240716
  Serious: Yes (Other)
  Sender: FDA-Public Use
  Company Number: 2024A134883

PATIENT
  Age: 63 Year
  Sex: Male

DRUGS (14)
  1. OSIMERTINIB [Suspect]
     Active Substance: OSIMERTINIB
     Indication: Lung adenocarcinoma stage IV
     Route: 048
     Dates: start: 20220201
  2. OSIMERTINIB [Suspect]
     Active Substance: OSIMERTINIB
     Indication: Metastases to adrenals
     Route: 048
     Dates: start: 20220201
  3. OSIMERTINIB [Suspect]
     Active Substance: OSIMERTINIB
     Indication: Metastases to liver
     Route: 048
     Dates: start: 20220201
  4. SAVOLITINIB [Suspect]
     Active Substance: SAVOLITINIB
     Indication: Lung adenocarcinoma stage IV
     Route: 048
  5. SAVOLITINIB [Suspect]
     Active Substance: SAVOLITINIB
     Indication: Metastases to adrenals
     Route: 048
  6. SAVOLITINIB [Suspect]
     Active Substance: SAVOLITINIB
     Indication: Metastases to liver
     Route: 048
  7. SAVOLITINIB [Suspect]
     Active Substance: SAVOLITINIB
     Indication: Lung adenocarcinoma stage IV
     Route: 048
  8. SAVOLITINIB [Suspect]
     Active Substance: SAVOLITINIB
     Indication: Metastases to adrenals
     Route: 048
  9. SAVOLITINIB [Suspect]
     Active Substance: SAVOLITINIB
     Indication: Metastases to liver
     Route: 048
  10. BEVACIZUMAB [Concomitant]
     Active Substance: BEVACIZUMAB
     Dates: start: 20220321
  11. BEVACIZUMAB [Concomitant]
     Active Substance: BEVACIZUMAB
  12. PEMETREXED [Concomitant]
     Active Substance: PEMETREXED
     Dates: start: 20220321
  13. NEDAPLATIN [Concomitant]
     Active Substance: NEDAPLATIN
     Dates: start: 20220321
  14. CABOZANTINIB [Concomitant]
     Active Substance: CABOZANTINIB
     Route: 048

REACTIONS (3)
  - Malignant neoplasm progression [Unknown]
  - Drug resistance [Unknown]
  - Oedema peripheral [Unknown]
